FAERS Safety Report 20862116 (Version 1)
Quarter: 2022Q2

REPORT INFORMATION
  Report Type: Spontaneous
  Country: TH (occurrence: TH)
  Receive Date: 20220523
  Receipt Date: 20220523
  Transmission Date: 20220720
  Serious: Yes (Hospitalization, Other)
  Sender: FDA-Public Use
  Company Number: TH-PFIZER INC-202200703213

PATIENT
  Age: 26 Year
  Sex: Female

DRUGS (1)
  1. LORLATINIB [Suspect]
     Active Substance: LORLATINIB
     Indication: Non-small cell lung cancer
     Dosage: 100 MG/DAY
     Route: 048
     Dates: start: 20211103

REACTIONS (2)
  - Cerebral haemorrhage [Unknown]
  - Platelet count decreased [Unknown]
